FAERS Safety Report 6517601-7 (Version None)
Quarter: 2009Q4

REPORT INFORMATION
  Report Type: 
  Country: None (occurrence: None)
  Receive Date: 20091224
  Receipt Date: 20091215
  Transmission Date: 20100525
  Serious: Yes (Hospitalization)
  Sender: FDA-Public Use
  Company Number: PHHY2009FR56901

PATIENT
  Sex: Female

DRUGS (5)
  1. STALEVO 100 [Suspect]
     Dosage: 800/800/200MG, DAILY
     Route: 048
     Dates: start: 20090101, end: 20090613
  2. TRIVASTAL [Suspect]
     Dosage: 50 MG, BID
     Route: 048
     Dates: start: 20090101, end: 20090613
  3. PROPRANOLOL [Concomitant]
     Dosage: 0.5 DF, BID
     Route: 048
  4. MOTILIUM [Concomitant]
     Dosage: 4 DF, DAILY
     Route: 048
  5. TEMESTA [Concomitant]
     Dosage: 1 MG, QD
     Route: 048

REACTIONS (5)
  - DEPRESSION [None]
  - HALLUCINATION, VISUAL [None]
  - MALNUTRITION [None]
  - VITAMIN B12 DEFICIENCY [None]
  - VITAMIN D DEFICIENCY [None]
